FAERS Safety Report 7138621-8 (Version None)
Quarter: 2010Q4

REPORT INFORMATION
  Report Type: 
  Country: None (occurrence: None)
  Receive Date: 20101201
  Receipt Date: 20101201
  Transmission Date: 20110411
  Serious: Yes (Other)
  Sender: FDA-Public Use
  Company Number: None

PATIENT
  Age: 42 Year
  Sex: Male
  Weight: 84.369 kg

DRUGS (1)
  1. ENTANERCEPT [Suspect]
     Indication: PSORIATIC ARTHROPATHY
     Dosage: 50MG WEEKLY SQ
     Route: 058
     Dates: start: 20080901, end: 20101101

REACTIONS (1)
  - RECTAL CANCER [None]
